FAERS Safety Report 15431444 (Version 1)
Quarter: 2018Q3

REPORT INFORMATION
  Report Type: Spontaneous
  Country: BA (occurrence: BA)
  Receive Date: 20180926
  Receipt Date: 20180926
  Transmission Date: 20181010
  Serious: Yes (Hospitalization, Other)
  Sender: FDA-Public Use
  Company Number: BA-BAYER-2018-175987

PATIENT
  Age: 66 Year
  Sex: Male

DRUGS (18)
  1. ASPIRIN PROTECT 100 MG [Suspect]
     Active Substance: ASPIRIN
     Indication: MYOCARDIAL INFARCTION
     Dosage: 100 MG, QD
     Route: 048
     Dates: start: 2014, end: 2017
  2. PANTOPRAZOLE [Concomitant]
     Active Substance: PANTOPRAZOLE
     Dosage: 20 MG, QD
  3. RAMIPRIL. [Concomitant]
     Active Substance: RAMIPRIL
     Dosage: 2.5 MG, QD
  4. AMIODARONE [Concomitant]
     Active Substance: AMIODARONE
     Dosage: 200 MG, BID
  5. LASIX [Concomitant]
     Active Substance: FUROSEMIDE
     Dosage: 20 MG, QD
  6. ASPIRIN PROTECT 100 MG [Interacting]
     Active Substance: ASPIRIN
     Indication: PERCUTANEOUS CORONARY INTERVENTION
  7. PRAZINE [ALPRAZOLAM] [Concomitant]
     Dosage: 25 MG, QD
  8. PLAVIX [Interacting]
     Active Substance: CLOPIDOGREL BISULFATE
     Dosage: UNK
     Dates: start: 20170818, end: 20170913
  9. XARELTO [Concomitant]
     Active Substance: RIVAROXABAN
     Dosage: 15 MG, BID
  10. XARELTO [Concomitant]
     Active Substance: RIVAROXABAN
     Dosage: 1 DF, QD
  11. DIGOXIN. [Concomitant]
     Active Substance: DIGOXIN
     Dosage: 0.25 MG, QD
  12. LOPRIL [CAPTOPRIL,HYDROCHLOROTHIAZIDE] [Concomitant]
     Dosage: 20 MG, UNK
  13. CONTROLOC [Concomitant]
     Active Substance: PANTOPRAZOLE SODIUM
     Dosage: 20 MG, QD
  14. SORTIS [Concomitant]
     Active Substance: ATORVASTATIN
     Dosage: 40 MG, QD
  15. PRESOLOL [Concomitant]
     Dosage: 50 MG, BID
  16. PHLEBODIA [Suspect]
     Active Substance: DIOSMIN
     Dosage: 600 MG, QD
  17. PLAVIX [Interacting]
     Active Substance: CLOPIDOGREL BISULFATE
     Dosage: 75 MG, QD
     Dates: start: 2014, end: 2014
  18. BISOPROLOL [BISOPROLOL] [Concomitant]
     Dosage: 2.5 MG, BID

REACTIONS (5)
  - Haemorrhagic stroke [Recovering/Resolving]
  - Speech disorder [Recovering/Resolving]
  - Labelled drug-drug interaction medication error [None]
  - Hemiparesis [Recovering/Resolving]
  - Atrial fibrillation [None]

NARRATIVE: CASE EVENT DATE: 2014
